FAERS Safety Report 18756658 (Version 1)
Quarter: 2021Q1

REPORT INFORMATION
  Report Type: Spontaneous
  Country: JP (occurrence: JP)
  Receive Date: 20210119
  Receipt Date: 20210119
  Transmission Date: 20210419
  Serious: Yes (Hospitalization, Other)
  Sender: FDA-Public Use
  Company Number: JP-PFIZER INC-2021011690

PATIENT
  Age: 83 Year
  Sex: Female
  Weight: 61 kg

DRUGS (13)
  1. LYRICA [Suspect]
     Active Substance: PREGABALIN
     Indication: HYPOAESTHESIA
     Dosage: 25 MG, 2X/DAY
     Route: 048
     Dates: start: 20201225, end: 20201229
  2. PROMAC [POLAPREZINC] [Concomitant]
     Active Substance: POLAPREZINC
     Dosage: UNK
  3. OLMESARTAN [OLMESARTAN MEDOXOMIL] [Concomitant]
     Active Substance: OLMESARTAN MEDOXOMIL
     Dosage: UNK
  4. FERROUS CITRATE SODIUM [Concomitant]
     Active Substance: SODIUM FERROUS CITRATE
     Dosage: UNK
  5. METHYCOBAL [Concomitant]
     Active Substance: METHYLCOBALAMIN
     Dosage: UNK
  6. LYRICA [Suspect]
     Active Substance: PREGABALIN
     Dosage: 50 MG, 2X/DAY
     Route: 048
     Dates: start: 20201230, end: 20201231
  7. SENNOSIDE KUNIHIRO [Concomitant]
     Dosage: UNK
  8. LANSOPRAZOLE TOWA [Concomitant]
     Active Substance: LANSOPRAZOLE
     Dosage: UNK
  9. AMLODIPINE SANDOZ [AMLODIPINE BESILATE] [Concomitant]
     Dosage: UNK
  10. CEFEPIME DIHYDROCHLORIDE [Concomitant]
     Active Substance: CEFEPIME HYDROCHLORIDE
  11. ISOTONIC SODIUM CHLORIDE SOLUTION [Concomitant]
     Active Substance: SODIUM CHLORIDE
  12. LYRICA [Suspect]
     Active Substance: PREGABALIN
     Dosage: 75 MG, 2X/DAY
     Route: 048
     Dates: start: 20210101, end: 20210104
  13. FOLIAMIN [Concomitant]
     Active Substance: FOLIC ACID
     Dosage: UNK

REACTIONS (6)
  - Decreased appetite [Not Recovered/Not Resolved]
  - Fall [Unknown]
  - Erythema nodosum [Unknown]
  - Haemoglobin decreased [Unknown]
  - Dizziness [Not Recovered/Not Resolved]
  - Pyrexia [Unknown]

NARRATIVE: CASE EVENT DATE: 20201230
